FAERS Safety Report 25760223 (Version 1)
Quarter: 2025Q3

REPORT INFORMATION
  Report Type: Spontaneous
  Country: US (occurrence: None)
  Receive Date: 20250903
  Receipt Date: 20250903
  Transmission Date: 20251021
  Serious: Yes (Hospitalization)
  Sender: FDA-CTU
  Company Number: None

PATIENT
  Age: 40 Year
  Sex: Male

DRUGS (1)
  1. CAPECITABINE [Suspect]
     Active Substance: CAPECITABINE
     Dosage: FREQUENCY : TWICE A DAY;?

REACTIONS (6)
  - Loss of consciousness [None]
  - Confusional state [None]
  - Dysarthria [None]
  - Brain fog [None]
  - Memory impairment [None]
  - Gait disturbance [None]
